FAERS Safety Report 5790065-7 (Version None)
Quarter: 2008Q2

REPORT INFORMATION
  Report Type: 
  Country: None (occurrence: None)
  Receive Date: 20080626
  Receipt Date: 20080616
  Transmission Date: 20081010
  Serious: Yes (Hospitalization, Other)
  Sender: FDA-Public Use
  Company Number: SE-ABBOTT-08P-150-0458215-00

PATIENT
  Age: 80 Year
  Sex: Male

DRUGS (2)
  1. PROCREN DEPOT [Suspect]
     Indication: PROSTATE CANCER
     Route: 058
     Dates: start: 20030101
  2. BICALUTAMIDE [Suspect]
     Indication: PROSTATE CANCER
     Route: 048
     Dates: start: 20080202, end: 20080228

REACTIONS (6)
  - CARDIAC FAILURE [None]
  - CARDIAC FIBRILLATION [None]
  - DIZZINESS [None]
  - MALAISE [None]
  - SYNCOPE [None]
  - WHEEZING [None]
